FAERS Safety Report 18855095 (Version 1)
Quarter: 2021Q1

REPORT INFORMATION
  Report Type: Spontaneous
  Country: GB (occurrence: GB)
  Receive Date: 20210205
  Receipt Date: 20210205
  Transmission Date: 20210420
  Serious: Yes (Other)
  Sender: FDA-Public Use
  Company Number: GB-TEVA-2021-GB-1874827

PATIENT
  Age: 76 Year
  Sex: Male
  Weight: 91 kg

DRUGS (13)
  1. ALLOPURINOL. [Concomitant]
     Active Substance: ALLOPURINOL
     Dosage: 1 DOSAGE FORMS DAILY;
     Dates: start: 20200908
  2. NITROFURANTOIN. [Concomitant]
     Active Substance: NITROFURANTOIN
     Dosage: 4 DOSAGE FORMS DAILY;
     Dates: start: 20210108, end: 20210111
  3. AMLODIPINE [Concomitant]
     Active Substance: AMLODIPINE BESYLATE
     Dosage: 1 DOSAGE FORMS DAILY;
     Dates: start: 20200908
  4. ATORVASTATIN [Concomitant]
     Active Substance: ATORVASTATIN
     Dosage: 1 DOSAGE FORMS DAILY; AT NIGHT
     Dates: start: 20200908
  5. THIAMINE. [Concomitant]
     Active Substance: THIAMINE
     Dosage: 2 DOSAGE FORMS DAILY;
     Dates: start: 20200908
  6. MIRTAZAPINE. [Suspect]
     Active Substance: MIRTAZAPINE
     Dates: start: 20210120
  7. PROPRANOLOL [Concomitant]
     Active Substance: PROPRANOLOL HYDROCHLORIDE
     Dates: start: 20200908
  8. LACTULOSE. [Concomitant]
     Active Substance: LACTULOSE
     Indication: CONSTIPATION
     Dosage: 30 ML DAILY;
     Dates: start: 20200707
  9. OMEPRAZOLE. [Concomitant]
     Active Substance: OMEPRAZOLE
     Dosage: 1 DOSAGE FORMS DAILY;
     Dates: start: 20201001
  10. COCODAMOL [Concomitant]
     Active Substance: ACETAMINOPHEN\CODEINE PHOSPHATE
     Dosage: TAKE ONE OR  TWO 4 TIMES/DAY
     Dates: start: 20201113, end: 20201120
  11. ZOPICLONE [Concomitant]
     Active Substance: ZOPICLONE
     Dosage: 1 DOSAGE FORMS DAILY; AT NIGHT
     Dates: start: 20200921
  12. FERROUS SULFATE. [Concomitant]
     Active Substance: FERROUS SULFATE
     Dosage: 3 DOSAGE FORMS DAILY;
     Dates: start: 20200908, end: 20201021
  13. MIRTAZAPINE. [Concomitant]
     Active Substance: MIRTAZAPINE
     Dosage: 1 DOSAGE FORMS DAILY; AT NIGHT
     Dates: start: 20201001

REACTIONS (1)
  - Restless legs syndrome [Recovering/Resolving]

NARRATIVE: CASE EVENT DATE: 20210120
